FAERS Safety Report 4830416-0 (Version None)
Quarter: 2005Q4

REPORT INFORMATION
  Report Type: 
  Country: None (occurrence: None)
  Receive Date: 20051117
  Receipt Date: 20050822
  Transmission Date: 20060501
  Serious: Yes (Life-Threatening)
  Sender: FDA-Public Use
  Company Number: GB-SANOFI-SYNTHELABO-F01200501625

PATIENT
  Sex: Male

DRUGS (6)
  1. OXALIPLATIN [Suspect]
     Indication: COLORECTAL CANCER METASTATIC
     Route: 042
  2. CAPECITABINE [Suspect]
     Dosage: 2000 MG TWICE DAILY FOR TWO WEEKS OF EACH THREE WEEK CYCLE
     Route: 048
  3. BEVACIZUMAB OR PLACEBO [Suspect]
     Dates: start: 20050302, end: 20050302
  4. CODEINE PHOSPHATE [Concomitant]
     Dates: start: 20041229
  5. DEXAMETHASONE [Concomitant]
     Dates: start: 20041229
  6. WARFARIN [Concomitant]
     Dates: start: 20050322

REACTIONS (1)
  - LARYNGOSPASM [None]
